FAERS Safety Report 11072049 (Version 1)
Quarter: 2015Q2

REPORT INFORMATION
  Report Type: Spontaneous
  Country: US (occurrence: None)
  Receive Date: 20150427
  Receipt Date: 20150427
  Transmission Date: 20150821
  Serious: Yes (Life-Threatening, Disabling, Other)
  Sender: FDA-Public Use
  Company Number: None

PATIENT
  Age: 46 Year
  Sex: Male
  Weight: 80.74 kg

DRUGS (13)
  1. LAMIVUDINE. [Concomitant]
     Active Substance: LAMIVUDINE
  2. ZETRIL (LISINOPRIL) [Concomitant]
  3. BUPROPION [Concomitant]
     Active Substance: BUPROPION
  4. DARUNAVIR [Concomitant]
     Active Substance: DARUNAVIR
  5. RALTEGRAVIR [Concomitant]
     Active Substance: RALTEGRAVIR
  6. RITONAVIR. [Concomitant]
     Active Substance: RITONAVIR
  7. TAMULOSIN [Concomitant]
     Active Substance: TAMSULOSIN
  8. AMLODIPINE BENSYLATE 10 ZYDUS PH [Suspect]
     Active Substance: AMLODIPINE BESYLATE
     Indication: HYPERTENSION
     Dosage: 40
     Route: 048
     Dates: start: 20120401, end: 20150407
  9. ACETAMINOPHEN. [Concomitant]
     Active Substance: ACETAMINOPHEN
  10. ETRAVIRINE [Concomitant]
     Active Substance: ETRAVIRINE
  11. ARIPIPRAZOLE. [Concomitant]
     Active Substance: ARIPIPRAZOLE
  12. ESOMEPRAZOLE [Concomitant]
     Active Substance: ESOMEPRAZOLE
  13. LOPERAMIDE [Concomitant]
     Active Substance: LOPERAMIDE

REACTIONS (2)
  - Oedema [None]
  - Chest pain [None]

NARRATIVE: CASE EVENT DATE: 20150301
